FAERS Safety Report 14572738 (Version 3)
Quarter: 2020Q2

REPORT INFORMATION
  Report Type: Report from Study
  Country: US (occurrence: US)
  Receive Date: 20180226
  Receipt Date: 20200508
  Transmission Date: 20200713
  Serious: Yes (Hospitalization)
  Sender: FDA-Public Use
  Company Number: US-EISAI MEDICAL RESEARCH-EC-2018-036406

PATIENT
  Age: 68 Year
  Sex: Male
  Weight: 91.63 kg

DRUGS (21)
  1. CALCIUM CARB-CHOLECALCIFEROL [Concomitant]
  2. DIPHENOXYLATE-ATROPINE [Concomitant]
     Active Substance: ATROPINE\DIPHENOXYLATE
  3. LENVATINIB [Suspect]
     Active Substance: LENVATINIB
     Indication: THYROID CANCER
     Route: 048
     Dates: start: 20170711, end: 20180218
  4. ASPIRIN. [Concomitant]
     Active Substance: ASPIRIN
  5. FENOFIBRATE. [Concomitant]
     Active Substance: FENOFIBRATE
  6. LEVOTHYROXINE. [Concomitant]
     Active Substance: LEVOTHYROXINE
  7. MULTIPLE VITAMIN [Concomitant]
     Active Substance: VITAMINS
  8. CALCITRIOL. [Concomitant]
     Active Substance: CALCITRIOL
  9. GINKGO BILOBA [Concomitant]
     Active Substance: GINKGO
  10. POTASSIUM CHLORIDE. [Concomitant]
     Active Substance: POTASSIUM CHLORIDE
  11. HYDROCHLOROTHIAZIDE. [Concomitant]
     Active Substance: HYDROCHLOROTHIAZIDE
  12. LOSARTAN. [Concomitant]
     Active Substance: LOSARTAN
  13. NIFEDIPINE. [Concomitant]
     Active Substance: NIFEDIPINE
  14. CELECOXIB. [Concomitant]
     Active Substance: CELECOXIB
  15. VITAMIN D [Concomitant]
     Active Substance: VITAMIN D NOS
  16. TAMSULOSIN [Concomitant]
     Active Substance: TAMSULOSIN
  17. GLUCOSAMINE-CHONDROITIN [Concomitant]
     Active Substance: CHONDROITIN SULFATE (BOVINE)\GLUCOSAMINE SULFATE
  18. OMEPRAZOLE. [Concomitant]
     Active Substance: OMEPRAZOLE
  19. CHOLECALCIFEROL [Concomitant]
     Active Substance: CHOLECALCIFEROL
  20. LABETALOL [Concomitant]
     Active Substance: LABETALOL\LABETALOL HYDROCHLORIDE
  21. LOPERAMIDE [Concomitant]
     Active Substance: LOPERAMIDE

REACTIONS (1)
  - Pneumatosis intestinalis [Recovered/Resolved]

NARRATIVE: CASE EVENT DATE: 20180219
